FAERS Safety Report 4939996-8 (Version None)
Quarter: 2006Q1

REPORT INFORMATION
  Report Type: 
  Country: None (occurrence: None)
  Receive Date: 20060310
  Receipt Date: 20051219
  Transmission Date: 20060701
  Serious: Yes (Other)
  Sender: FDA-Public Use
  Company Number: GB-BRISTOL-MYERS SQUIBB COMPANY-13224050

PATIENT
  Age: 76 Year
  Sex: Female
  Weight: 95 kg

DRUGS (4)
  1. ABILIFY [Suspect]
     Indication: PSYCHOTIC DISORDER
     Route: 048
     Dates: start: 20051202, end: 20051204
  2. HALOPERIDOL [Concomitant]
  3. CO-CODAMOL [Concomitant]
     Dosage: TABLETS
     Route: 048
  4. CO-AMILOFRUSE [Concomitant]
     Dosage: ^LONG TERM^
     Route: 048

REACTIONS (4)
  - HALLUCINATIONS, MIXED [None]
  - NAUSEA [None]
  - PHOTOPSIA [None]
  - VOMITING [None]
